FAERS Safety Report 8519936 (Version 13)
Quarter: 2012Q4

REPORT INFORMATION
  Report Type: 
  Country: US (occurrence: US)
  Receive Date: 20120418
  Receipt Date: 20121211
  Transmission Date: 20130627
  Serious: Yes (Other)
  Sender: FDA-Public Use
  Company Number: US-ASTRAZENECA-2011SE41535

PATIENT
  Age: 48 Year
  Sex: Female
  Weight: 67.6 kg

DRUGS (51)
  1. PROPO N/APAP/DARVOCET [Concomitant]
     Dosage: 100-650
     Dates: start: 20020328
  2. PROPO N/APAP/DARVOCET [Concomitant]
     Dates: start: 2006
  3. CYCLOBENZAR [Concomitant]
  4. NIFEDIPINE [Concomitant]
  5. SUDAFED [Concomitant]
     Dates: start: 2006
  6. MVI/MULTIVITAMINES [Concomitant]
     Dates: start: 20030503
  7. ARTHROTEC [Concomitant]
     Dates: start: 2006
  8. LYRICA [Concomitant]
     Dates: start: 20070102
  9. LYRICA [Concomitant]
     Dates: start: 20090519
  10. LYRICA [Concomitant]
     Dates: start: 2010
  11. TOPOROL XL [Concomitant]
     Dates: start: 20090519
  12. TOPOROL XL [Concomitant]
     Dates: start: 2010
  13. FISH OIL [Concomitant]
     Dates: start: 2010
  14. FOLIC ACID [Concomitant]
     Dates: start: 2010
  15. GLYSET [Concomitant]
     Dates: start: 20070102
  16. LACTULOSE [Concomitant]
     Dates: start: 2010
  17. BISACODYL [Concomitant]
     Dates: start: 20090519
  18. BONIVA [Concomitant]
     Dates: start: 20070131
  19. BONIVA [Concomitant]
     Dates: start: 20090519
  20. HYDROXYZINE HCL [Concomitant]
     Dates: start: 20090519
  21. FLEXERIL [Concomitant]
     Dates: start: 20051206
  22. VOLTAREN [Concomitant]
     Dates: start: 20051206
  23. ANCEF [Concomitant]
     Dates: start: 200507
  24. FOLATE [Concomitant]
     Dates: start: 20030502
  25. PROPOXYPHENE NAPSYLATE [Concomitant]
     Dosage: 100-650
     Dates: start: 20070102
  26. PREDNISONE [Concomitant]
     Dosage: 10-20 MG
     Dates: start: 20070106
  27. NEXIUM [Suspect]
     Indication: GASTROOESOPHAGEAL REFLUX DISEASE
     Route: 048
  28. NEXIUM [Suspect]
     Indication: GASTROOESOPHAGEAL REFLUX DISEASE
     Route: 048
     Dates: start: 200112, end: 200307
  29. NEXIUM [Suspect]
     Indication: GASTROOESOPHAGEAL REFLUX DISEASE
     Route: 048
     Dates: start: 20020405
  30. NEXIUM [Suspect]
     Indication: GASTROOESOPHAGEAL REFLUX DISEASE
     Route: 048
     Dates: start: 2003, end: 2011
  31. NEXIUM [Suspect]
     Indication: GASTROOESOPHAGEAL REFLUX DISEASE
     Route: 048
     Dates: start: 20090514
  32. NEXIUM [Suspect]
     Indication: GASTROOESOPHAGEAL REFLUX DISEASE
     Route: 048
     Dates: start: 2010
  33. PRILOSEC [Concomitant]
  34. PROTONIX [Concomitant]
     Dates: start: 20081201
  35. PEPCID [Concomitant]
     Dates: start: 20020516
  36. PEPCID [Concomitant]
     Dates: start: 2006
  37. VITAMIN D [Concomitant]
     Indication: VITAMIN D DEFICIENCY
  38. OSCAL [Concomitant]
     Indication: CALCIUM DEFICIENCY
     Dosage: 500/200 D-3
     Dates: start: 2010
  39. IMITREX [Concomitant]
     Indication: MIGRAINE
  40. IMITREX [Concomitant]
     Indication: MIGRAINE
     Dates: start: 2006
  41. COMPAZINE [Concomitant]
  42. HYDROCLORAZAZIDE/HCTZ [Concomitant]
     Indication: BLOOD PRESSURE
  43. HYDROCLORAZAZIDE/HCTZ [Concomitant]
     Indication: BLOOD PRESSURE
     Dates: start: 20020516
  44. TOMARADOLE HCL [Concomitant]
  45. CERALAFATE [Concomitant]
     Dates: start: 2010
  46. KADOR [Concomitant]
  47. OMEGA-3 SUPPLEMENT [Concomitant]
  48. NIZATIDIZINE/AXID [Concomitant]
  49. ZOFREN [Concomitant]
  50. ZYRTEC [Concomitant]
     Indication: MULTIPLE ALLERGIES
     Dates: start: 20070106
  51. POTASSIUM CHLORIDE/K DUR [Concomitant]
     Dosage: 10 TO 100 MEQ
     Dates: start: 20020315

REACTIONS (14)
  - Lumbar radiculopathy [Unknown]
  - Haematemesis [Unknown]
  - Osteoporosis [Unknown]
  - Calcium deficiency [Unknown]
  - Vitamin D deficiency [Unknown]
  - Multiple fractures [Unknown]
  - Intervertebral disc degeneration [Unknown]
  - Intervertebral disc protrusion [Unknown]
  - Osteopenia [Unknown]
  - Intervertebral disc displacement [Unknown]
  - Spinal osteoarthritis [Unknown]
  - Vomiting [Unknown]
  - Nausea [Unknown]
  - Back pain [Unknown]
